FAERS Safety Report 5379091-X (Version None)
Quarter: 2007Q3

REPORT INFORMATION
  Report Type: 
  Country: None (occurrence: None)
  Receive Date: 20070705
  Receipt Date: 20070621
  Transmission Date: 20080115
  Serious: Yes (Other)
  Sender: FDA-Public Use
  Company Number: US-ELI_LILLY_AND_COMPANY-US200706003851

PATIENT
  Age: 47 Year
  Sex: Male

DRUGS (5)
  1. CYMBALTA [Suspect]
     Indication: NECK PAIN
     Dosage: 60 MG, UNK
     Dates: start: 20060101
  2. TOPROL-XL [Concomitant]
     Dosage: UNK MG, UNK
  3. SOMA [Concomitant]
     Dosage: UNK MG, UNK
  4. LYRICA [Concomitant]
     Dosage: UNK MG, UNK
     Dates: start: 20070401
  5. OXYCODONE HCL [Concomitant]
     Dosage: UNK MG, UNK

REACTIONS (3)
  - GASTRIC BYPASS [None]
  - WEIGHT DECREASED [None]
  - WEIGHT INCREASED [None]
